FAERS Safety Report 4820681-8 (Version None)
Quarter: 2005Q4

REPORT INFORMATION
  Report Type: 
  Country: None (occurrence: None)
  Receive Date: 20051104
  Receipt Date: 20051028
  Transmission Date: 20060501
  Serious: Yes (Hospitalization)
  Sender: FDA-Public Use
  Company Number: 2005UW16328

PATIENT
  Age: 79 Year
  Sex: Female
  Weight: 44.9 kg

DRUGS (4)
  1. ARIMIDEX [Suspect]
     Indication: BREAST CANCER
     Route: 048
  2. TOPROL-XL [Concomitant]
  3. SYNTHROID [Concomitant]
  4. PLAVIX [Concomitant]

REACTIONS (4)
  - CONTUSION [None]
  - HYPERHIDROSIS [None]
  - KIDNEY INFECTION [None]
  - PNEUMONIA [None]
